FAERS Safety Report 22222734 (Version 1)
Quarter: 2023Q2

REPORT INFORMATION
  Report Type: Spontaneous
  Country: US (occurrence: None)
  Receive Date: 20230418
  Receipt Date: 20230418
  Transmission Date: 20230722
  Serious: Yes (Other)
  Sender: FDA-Public Use
  Company Number: US-MLMSERVICE-20230329-4187335-1

PATIENT
  Age: 60 Year
  Sex: Female

DRUGS (3)
  1. METOPROLOL TARTRATE [Suspect]
     Active Substance: METOPROLOL TARTRATE
     Indication: Postural orthostatic tachycardia syndrome
     Route: 065
     Dates: start: 2020
  2. IVABRADINE [Concomitant]
     Active Substance: IVABRADINE
     Indication: Postural orthostatic tachycardia syndrome
     Route: 065
     Dates: start: 2020
  3. PYRIDOSTIGMINE [Concomitant]
     Active Substance: PYRIDOSTIGMINE
     Indication: Postural orthostatic tachycardia syndrome
     Dosage: UNKNOWN
     Route: 065
     Dates: start: 2020

REACTIONS (3)
  - Exercise tolerance decreased [Recovering/Resolving]
  - Hypotension [Recovering/Resolving]
  - Bradycardia [Recovering/Resolving]

NARRATIVE: CASE EVENT DATE: 20200101
